FAERS Safety Report 19714062 (Version 1)
Quarter: 2021Q3

REPORT INFORMATION
  Report Type: Report from Study
  Country: None (occurrence: AD)
  Receive Date: 20210818
  Receipt Date: 20210818
  Transmission Date: 20211014
  Serious: Yes (Other)
  Sender: FDA-Public Use
  Company Number: FR-ABBVIE-21K-056-4041019-00

PATIENT
  Age: 19 Year
  Sex: Male

DRUGS (3)
  1. FORLAX [Concomitant]
     Active Substance: POLYETHYLENE GLYCOL 4000
     Indication: PRODUCT USED FOR UNKNOWN INDICATION
  2. HUMIRA [Suspect]
     Active Substance: ADALIMUMAB
     Route: 058
     Dates: start: 202108, end: 202108
  3. HUMIRA [Suspect]
     Active Substance: ADALIMUMAB
     Indication: CROHN^S DISEASE
     Route: 058
     Dates: start: 20210723, end: 20210723

REACTIONS (7)
  - Headache [Recovered/Resolved]
  - Anxiety [Unknown]
  - Intestinal obstruction [Unknown]
  - Skin operation [Unknown]
  - Fear [Unknown]
  - Dyschezia [Unknown]
  - Faeces hard [Unknown]

NARRATIVE: CASE EVENT DATE: 2021
